FAERS Safety Report 5064815-1 (Version None)
Quarter: 2006Q3

REPORT INFORMATION
  Report Type: 
  Country: None (occurrence: None)
  Receive Date: 20060728
  Receipt Date: 20041213
  Transmission Date: 20061208
  Serious: Yes (Other)
  Sender: FDA-Public Use
  Company Number: PHBS2004JP16653

PATIENT
  Age: 9 Year
  Sex: Male

DRUGS (6)
  1. NEORAL [Suspect]
     Indication: NEPHROTIC SYNDROME
     Dosage: 100 MG/D
     Route: 048
  2. METHYLPREDNISOLONE [Concomitant]
  3. PREDNISOLONE [Concomitant]
     Route: 048
  4. PREDNISOLONE [Concomitant]
     Dosage: 20-40 MG/D
     Route: 048
  5. CYCLOPHOSPHAMIDE [Concomitant]
  6. MIZORIBINE [Concomitant]

REACTIONS (8)
  - BLOOD BETA-D-GLUCAN INCREASED [None]
  - BLOOD CREATININE INCREASED [None]
  - C-REACTIVE PROTEIN INCREASED [None]
  - DRUG INEFFECTIVE [None]
  - INFECTION [None]
  - RENAL FAILURE ACUTE [None]
  - TUBULOINTERSTITIAL NEPHRITIS [None]
  - URINE SODIUM INCREASED [None]
